FAERS Safety Report 5266253-5 (Version None)
Quarter: 2007Q1

REPORT INFORMATION
  Report Type: 
  Country: None (occurrence: None)
  Receive Date: 20070315
  Receipt Date: 20070314
  Transmission Date: 20070707
  Serious: Yes (Other)
  Sender: FDA-Public Use
  Company Number: DE-GLAXOSMITHKLINE-D0052302A

PATIENT
  Sex: Female

DRUGS (1)
  1. ZOVIRAX [Suspect]
     Route: 065

REACTIONS (4)
  - LEUKOCYTOSIS [None]
  - NASAL ODOUR [None]
  - PLEURAL EFFUSION [None]
  - WEIGHT DECREASED [None]
